FAERS Safety Report 5932767-5 (Version None)
Quarter: 2008Q4

REPORT INFORMATION
  Report Type: 
  Country: None (occurrence: None)
  Receive Date: 20081028
  Receipt Date: 20081021
  Transmission Date: 20090506
  Serious: Yes (Death)
  Sender: FDA-Public Use
  Company Number: A0750896A

PATIENT
  Age: 79 Year
  Sex: Male
  Weight: 66 kg

DRUGS (11)
  1. ROSIGLITAZONE [Suspect]
     Dosage: 8MG PER DAY
     Route: 048
     Dates: start: 20080423
  2. TIAPRIDAL [Concomitant]
     Dosage: 100MG TWICE PER DAY
     Route: 048
     Dates: start: 20070311, end: 20080922
  3. PROTHAZIN [Concomitant]
     Indication: SLEEP DISORDER
     Dosage: 25MG AT NIGHT
     Route: 048
     Dates: start: 20080919, end: 20080922
  4. HYPNOGEN [Concomitant]
     Indication: INSOMNIA
     Dosage: 10MG PER DAY
     Route: 048
     Dates: start: 20080919, end: 20080922
  5. CIPRALEX [Concomitant]
     Indication: DEPRESSION
     Dosage: 5MG PER DAY
     Route: 048
     Dates: start: 20070311, end: 20080922
  6. EXELON [Concomitant]
     Dosage: 3MG TWICE PER DAY
     Route: 048
     Dates: start: 20050721, end: 20080922
  7. ANOPYRIN [Concomitant]
     Indication: THROMBOSIS PROPHYLAXIS
     Dosage: 100MG PER DAY
     Route: 048
     Dates: start: 20080919, end: 20080922
  8. ISOSORBIDE MONONITRATE [Concomitant]
     Dosage: 20MG TWICE PER DAY
     Route: 048
     Dates: start: 20080919, end: 20080922
  9. VASOCARDIN [Concomitant]
     Dosage: 12.5MG TWICE PER DAY
     Route: 048
     Dates: start: 20080919, end: 20080922
  10. FAMOTIDIN [Concomitant]
     Indication: DYSPEPSIA
     Dosage: 20MG PER DAY
     Route: 048
     Dates: start: 20080919, end: 20080922
  11. PREDUCTAL [Concomitant]
     Dosage: 30MG TWICE PER DAY
     Route: 048
     Dates: start: 20080919, end: 20080922

REACTIONS (5)
  - ACUTE MYOCARDIAL INFARCTION [None]
  - ARRHYTHMIA [None]
  - ATRIAL FIBRILLATION [None]
  - CARDIOPULMONARY FAILURE [None]
  - DEHYDRATION [None]
